FAERS Safety Report 25191343 (Version 1)
Quarter: 2025Q2

REPORT INFORMATION
  Report Type: Spontaneous
  Country: GB (occurrence: GB)
  Receive Date: 20250411
  Receipt Date: 20250411
  Transmission Date: 20250716
  Serious: Yes (Other)
  Sender: ELI LILLY AND CO
  Company Number: None

PATIENT
  Age: 49 Year
  Sex: Female

DRUGS (3)
  1. MOUNJARO [Interacting]
     Active Substance: TIRZEPATIDE
     Indication: Weight control
     Route: 065
     Dates: start: 202503
  2. PROGESTERONE [Interacting]
     Active Substance: PROGESTERONE
     Indication: Hormone replacement therapy
     Route: 048
  3. ESTROGENS [Concomitant]
     Active Substance: ESTROGENS
     Indication: Hormone replacement therapy
     Route: 061

REACTIONS (3)
  - Malabsorption [Not Recovered/Not Resolved]
  - Heavy menstrual bleeding [Unknown]
  - Drug interaction [Unknown]
